FAERS Safety Report 9470660 (Version 1)
Quarter: 2013Q3

REPORT INFORMATION
  Report Type: Report from Study
  Country: US (occurrence: US)
  Receive Date: 20130822
  Receipt Date: 20130822
  Transmission Date: 20140515
  Serious: Yes (Hospitalization)
  Sender: FDA-Public Use
  Company Number: US-009507513-1308USA007939

PATIENT
  Age: 45 Year
  Sex: Female

DRUGS (2)
  1. DECADRON [Suspect]
  2. INSULIN [Concomitant]

REACTIONS (2)
  - Hyperglycaemia [Not Recovered/Not Resolved]
  - Confusional state [Not Recovered/Not Resolved]
